FAERS Safety Report 4641943-3 (Version None)
Quarter: 2005Q2

REPORT INFORMATION
  Report Type: 
  Country: None (occurrence: None)
  Receive Date: 20050420
  Receipt Date: 20050406
  Transmission Date: 20051028
  Serious: Yes (Hospitalization)
  Sender: FDA-Public Use
  Company Number: USA030742360

PATIENT
  Age: 72 Year
  Sex: Female
  Weight: 52 kg

DRUGS (14)
  1. FORTEO [Suspect]
     Indication: OSTEOPOROSIS
     Dosage: 20  UG/1 DAY
     Dates: start: 20030701
  2. QUININE SULFATE [Concomitant]
  3. MYOFLEX (TROLAMINE SALICYLATE) [Concomitant]
  4. CALCIUM GLUCONATE [Concomitant]
  5. IMDUR [Concomitant]
  6. TOPROL-XL [Concomitant]
  7. PAIN MEDICATION [Concomitant]
  8. ATIVAN [Concomitant]
  9. NEURONTIN (GABAPENTIN PFIZER) [Concomitant]
  10. VOLTAREN [Concomitant]
  11. DOXEPIN HCL [Concomitant]
  12. PHENERGAN [Concomitant]
  13. ZOCOR (SIMVASTATIN RATIOPHARM) [Concomitant]
  14. FLEXERIL [Concomitant]

REACTIONS (29)
  - ANGINA PECTORIS [None]
  - BACK PAIN [None]
  - BLOOD PRESSURE DECREASED [None]
  - BRONCHITIS [None]
  - CHEST PAIN [None]
  - CONDITION AGGRAVATED [None]
  - CONTUSION [None]
  - FALL [None]
  - FATIGUE [None]
  - GASTROOESOPHAGEAL REFLUX DISEASE [None]
  - HERNIA REPAIR [None]
  - HYPERTENSION [None]
  - INJECTION SITE ERYTHEMA [None]
  - INJECTION SITE HAEMORRHAGE [None]
  - INJECTION SITE PAIN [None]
  - INJECTION SITE REACTION [None]
  - INSOMNIA [None]
  - JOINT INJURY [None]
  - KIDNEY INFECTION [None]
  - LOWER LIMB FRACTURE [None]
  - MOVEMENT DISORDER [None]
  - NAUSEA [None]
  - PAIN [None]
  - PAIN IN EXTREMITY [None]
  - PHARMACEUTICAL PRODUCT COMPLAINT [None]
  - POST PROCEDURAL COMPLICATION [None]
  - SCAR [None]
  - TONGUE DISORDER [None]
  - WEIGHT INCREASED [None]
